FAERS Safety Report 4292260-5 (Version None)
Quarter: 2004Q1

REPORT INFORMATION
  Report Type: 
  Country: None (occurrence: None)
  Receive Date: 20040211
  Receipt Date: 20040130
  Transmission Date: 20041129
  Serious: Yes (Other)
  Sender: FDA-Public Use
  Company Number: GB-GLAXOSMITHKLINE-B0321715A

PATIENT
  Age: 74 Year
  Sex: Male

DRUGS (6)
  1. RANITIDINE [Suspect]
     Indication: DYSPEPSIA
     Dosage: 150MG UNKNOWN
     Route: 048
     Dates: start: 20030827, end: 20030902
  2. ATORVASTATIN [Concomitant]
     Dosage: 10MG PER DAY
     Route: 048
     Dates: start: 20030428, end: 20030902
  3. ASPIRIN [Concomitant]
     Indication: CORONARY ARTERY DISEASE
     Dosage: 75MG PER DAY
     Route: 048
  4. DILTIAZEM [Concomitant]
     Indication: CORONARY ARTERY DISEASE
     Dosage: 300MG PER DAY
     Route: 048
  5. LISINOPRIL [Concomitant]
     Indication: CORONARY ARTERY DISEASE
     Dosage: 5MG PER DAY
     Route: 048
  6. CO-CODAMOL [Concomitant]
     Route: 048

REACTIONS (5)
  - ASPARTATE AMINOTRANSFERASE ABNORMAL [None]
  - BLOOD ALKALINE PHOSPHATASE INCREASED [None]
  - GAMMA-GLUTAMYLTRANSFERASE ABNORMAL [None]
  - JAUNDICE [None]
  - LIVER FUNCTION TEST ABNORMAL [None]
